FAERS Safety Report 21634640 (Version 1)
Quarter: 2022Q4

REPORT INFORMATION
  Report Type: Spontaneous
  Country: US (occurrence: US)
  Receive Date: 20221123
  Receipt Date: 20221123
  Transmission Date: 20230112
  Serious: No
  Sender: FDA-Public Use
  Company Number: US-ALMIRALL, LLC-2022AQU000374

PATIENT
  Age: 14 Year
  Sex: Male
  Weight: 62 kg

DRUGS (1)
  1. SEYSARA [Suspect]
     Active Substance: SARECYCLINE HYDROCHLORIDE
     Indication: Acne
     Dosage: 60 MILLIGRAM, QD
     Route: 048

REACTIONS (3)
  - Sunburn [Unknown]
  - Underdose [Unknown]
  - Drug ineffective [Unknown]
